FAERS Safety Report 5904979-8 (Version None)
Quarter: 2008Q3

REPORT INFORMATION
  Report Type: 
  Country: None (occurrence: None)
  Receive Date: 20080909
  Receipt Date: 20080415
  Transmission Date: 20090109
  Serious: Yes (Other)
  Sender: FDA-Public Use
  Company Number: 163-20785-08030502

PATIENT
  Age: 44 Year
  Sex: Male

DRUGS (1)
  1. THALOMID [Suspect]
     Indication: APHTHOUS STOMATITIS
     Dosage: ORAL
     Route: 048
     Dates: start: 19940101

REACTIONS (1)
  - TYPE 1 DIABETES MELLITUS [None]
